FAERS Safety Report 6297548-4 (Version None)
Quarter: 2009Q3

REPORT INFORMATION
  Report Type: 
  Country: None (occurrence: None)
  Receive Date: 20090805
  Receipt Date: 20090803
  Transmission Date: 20100115
  Serious: Yes (Death)
  Sender: FDA-Public Use
  Company Number: NZ-ASTRAZENECA-2009SE06482

PATIENT
  Age: 30765 Day
  Sex: Female

DRUGS (5)
  1. FELODIPINE [Suspect]
     Route: 048
     Dates: start: 20010329, end: 20010405
  2. ACETYLSALICYLIC ACID [Concomitant]
     Route: 048
     Dates: start: 20010329, end: 20010405
  3. ENALAPRIL MALEATE [Concomitant]
     Route: 048
     Dates: end: 20010401
  4. CETIRIZINE [Concomitant]
     Dates: start: 20010403, end: 20010401
  5. FLORADIX [Concomitant]
     Route: 048
     Dates: start: 20010402, end: 20010405

REACTIONS (1)
  - TOXIC EPIDERMAL NECROLYSIS [None]
